FAERS Safety Report 12755804 (Version 1)
Quarter: 2016Q3

REPORT INFORMATION
  Report Type: Report from Study
  Country: GB (occurrence: GB)
  Receive Date: 20160916
  Receipt Date: 20160916
  Transmission Date: 20161109
  Serious: Yes (Other)
  Sender: FDA-Public Use
  Company Number: GB-SA-2016SA062509

PATIENT
  Age: 67 Year
  Sex: Male
  Weight: 91 kg

DRUGS (4)
  1. VANDETANIB. [Suspect]
     Active Substance: VANDETANIB
     Indication: ADENOCARCINOMA OF COLON
     Route: 048
     Dates: start: 20140725, end: 20140826
  2. VANDETANIB. [Suspect]
     Active Substance: VANDETANIB
     Indication: ADENOCARCINOMA OF COLON
     Route: 048
     Dates: start: 20140721, end: 20140724
  3. AZD6244 [Suspect]
     Active Substance: SELUMETINIB
     Indication: ADENOCARCINOMA OF COLON
     Route: 048
     Dates: start: 20140804, end: 20140810
  4. AZD6244 [Suspect]
     Active Substance: SELUMETINIB
     Indication: ADENOCARCINOMA OF COLON
     Dosage: DOSE REDUCED
     Route: 048
     Dates: start: 20140823, end: 20140826

REACTIONS (1)
  - Detachment of retinal pigment epithelium [Recovered/Resolved]

NARRATIVE: CASE EVENT DATE: 20140823
